FAERS Safety Report 4740705-6 (Version None)
Quarter: 2005Q3

REPORT INFORMATION
  Report Type: 
  Country: None (occurrence: None)
  Receive Date: 20050810
  Receipt Date: 20050511
  Transmission Date: 20060218
  Serious: Yes (Hospitalization)
  Sender: FDA-Public Use
  Company Number: JP-GLAXOSMITHKLINE-B0381031A

PATIENT
  Age: 33 Year
  Sex: Female
  Weight: 50 kg

DRUGS (8)
  1. ZEFIX [Suspect]
     Indication: HEPATITIS B
     Dosage: 100MG PER DAY
     Route: 048
     Dates: start: 20050425, end: 20050511
  2. URSODIOL [Concomitant]
     Dosage: 2TAB THREE TIMES PER DAY
     Route: 048
     Dates: start: 20050509
  3. VITAMEDIN [Concomitant]
     Dosage: 3UNIT PER DAY
     Route: 048
  4. VITAMEDIN [Concomitant]
     Dosage: 1UNIT PER DAY
     Route: 042
  5. PRIMPERAN INJ [Concomitant]
     Route: 048
     Dates: start: 20050424
  6. PRIMPERAN INJ [Concomitant]
     Route: 042
     Dates: start: 20050424
  7. LOXONIN [Concomitant]
     Route: 048
     Dates: start: 20050505
  8. SELBEX [Concomitant]
     Route: 048
     Dates: start: 20050505

REACTIONS (6)
  - BLOOD BILIRUBIN INCREASED [None]
  - BLOOD LACTATE DEHYDROGENASE INCREASED [None]
  - HAEMOGLOBIN DECREASED [None]
  - HAEMOLYTIC ANAEMIA [None]
  - OCCULT BLOOD [None]
  - RENAL IMPAIRMENT [None]
